FAERS Safety Report 10047576 (Version 3)
Quarter: 2014Q2

REPORT INFORMATION
  Report Type: Report from Study
  Country: PL (occurrence: PL)
  Receive Date: 20140331
  Receipt Date: 20140609
  Transmission Date: 20141212
  Serious: No
  Sender: FDA-Public Use
  Company Number: PL-OTSUKA-US-2014-10119

PATIENT
  Age: 44 Year
  Sex: Male

DRUGS (5)
  1. OPC-41061 [Suspect]
     Indication: CONGENITAL CYSTIC KIDNEY DISEASE
     Dosage: 120 MG MILLIGRAM(S), DAILY DOSE
     Route: 048
     Dates: start: 20110603, end: 20130830
  2. BETALOC [Concomitant]
     Indication: HYPERTENSION
     Dosage: 100 MG MILLIGRAM(S), DAILY DOSE
     Route: 048
     Dates: start: 20130228, end: 20140217
  3. AMLOPIN [Concomitant]
     Indication: HYPERTENSION
     Dosage: 2.5 MG MILLIGRAM(S), DAILY DOSE
     Route: 048
     Dates: start: 20130228
  4. DOXAR [Concomitant]
     Indication: HYPERTENSION
     Dosage: 4 MG MILLIGRAM(S), DAILY DOSE
     Route: 048
     Dates: start: 20091210
  5. LOTENSIN [Concomitant]
     Indication: HYPERTENSION
     Dosage: 20 MG MILLIGRAM(S), DAILY DOSE
     Route: 048
     Dates: start: 20020122, end: 20140217

REACTIONS (1)
  - Renal impairment [Recovered/Resolved with Sequelae]
